FAERS Safety Report 7681007-8 (Version None)
Quarter: 2011Q3

REPORT INFORMATION
  Report Type: 
  Country: None (occurrence: None)
  Receive Date: 20110809
  Receipt Date: 20110803
  Transmission Date: 20111222
  Serious: Yes (Death, Hospitalization)
  Sender: FDA-Public Use
  Company Number: 2011002110

PATIENT
  Age: 85 Year
  Sex: Female

DRUGS (12)
  1. ZOFRAN [Concomitant]
  2. LORAZEPAM [Concomitant]
  3. ZANTAC [Concomitant]
  4. XANAX [Concomitant]
  5. AMBIEN [Concomitant]
  6. CALTRATE (CALCIUM) [Concomitant]
  7. COUMADIN [Concomitant]
  8. DEXAMETHASONE (NEOMYCIN SULFATE) [Concomitant]
  9. PROVISUAL (GENTAMICIN SULFATE) [Concomitant]
  10. SYNTHROID [Concomitant]
  11. TARCEVA [Suspect]
     Indication: LUNG CARCINOMA CELL TYPE UNSPECIFIED STAGE 0
     Dosage: 150 MG, UID/QD, ORAL
     Route: 048
     Dates: start: 20100709
  12. OXYCODONE HCL [Concomitant]

REACTIONS (1)
  - DYSPNOEA [None]
